FAERS Safety Report 12364651 (Version 2)
Quarter: 2016Q2

REPORT INFORMATION
  Report Type: Spontaneous
  Country: ES (occurrence: ES)
  Receive Date: 20160512
  Receipt Date: 20160602
  Transmission Date: 20160815
  Serious: Yes (Other)
  Sender: FDA-Public Use
  Company Number: ES-ABBVIE-16P-144-1627162-00

PATIENT
  Age: 70 Year
  Sex: Female

DRUGS (2)
  1. KREON [Suspect]
     Active Substance: PANCRELIPASE
     Route: 065
     Dates: start: 201605
  2. KREON [Suspect]
     Active Substance: PANCRELIPASE
     Indication: PANCREATIC INSUFFICIENCY
     Dosage: UNIT DOSE: 50,000-50,000-50,000 UNITS,2-2-2 WITH MEALS
     Route: 048
     Dates: start: 201205

REACTIONS (2)
  - Pancreatic carcinoma recurrent [Unknown]
  - Feeling abnormal [Unknown]

NARRATIVE: CASE EVENT DATE: 201507
